FAERS Safety Report 6456405-0 (Version None)
Quarter: 2009Q4

REPORT INFORMATION
  Report Type: 
  Country: None (occurrence: None)
  Receive Date: 20091125
  Receipt Date: 20091113
  Transmission Date: 20100525
  Serious: Yes (Other)
  Sender: FDA-Public Use
  Company Number: PHEH2009US14519

PATIENT
  Sex: Female

DRUGS (2)
  1. EXJADE [Suspect]
     Indication: APLASTIC ANAEMIA
     Dosage: 1500 MG, DAILY
     Route: 048
     Dates: start: 20081209
  2. EXJADE [Suspect]
     Indication: ANAEMIA

REACTIONS (19)
  - ACIDOSIS [None]
  - AMINOACIDURIA [None]
  - BLOOD ALBUMIN DECREASED [None]
  - BLOOD CREATININE INCREASED [None]
  - BLOOD GLUCOSE INCREASED [None]
  - BLOOD SODIUM DECREASED [None]
  - FANCONI SYNDROME [None]
  - GASTROINTESTINAL DISORDER [None]
  - GLOMERULAR FILTRATION RATE DECREASED [None]
  - GLYCOSURIA [None]
  - HAEMATOCRIT DECREASED [None]
  - HAEMOGLOBIN DECREASED [None]
  - HYPERURICAEMIA [None]
  - HYPOCALCAEMIA [None]
  - HYPOMAGNESAEMIA [None]
  - HYPOPHOSPHATAEMIA [None]
  - RED BLOOD CELL COUNT DECREASED [None]
  - RED CELL DISTRIBUTION WIDTH INCREASED [None]
  - RENAL TUBULAR ACIDOSIS [None]
